FAERS Safety Report 23306657 (Version 1)
Quarter: 2023Q4

REPORT INFORMATION
  Report Type: Report from Study
  Country: US (occurrence: US)
  Receive Date: 20231218
  Receipt Date: 20231218
  Transmission Date: 20240110
  Serious: Yes (Other)
  Sender: FDA-Public Use
  Company Number: US-ABBVIE-5538097

PATIENT
  Sex: Female

DRUGS (1)
  1. HUMIRA [Suspect]
     Active Substance: ADALIMUMAB
     Indication: Psoriatic arthropathy
     Route: 058
     Dates: start: 20131213, end: 20230714

REACTIONS (3)
  - Systemic lupus erythematosus [Not Recovered/Not Resolved]
  - Swelling [Unknown]
  - Musculoskeletal stiffness [Unknown]
